FAERS Safety Report 9854247 (Version 1)
Quarter: 2014Q1

REPORT INFORMATION
  Report Type: Spontaneous
  Country: CD (occurrence: CD)
  Receive Date: 20140130
  Receipt Date: 20140130
  Transmission Date: 20141002
  Serious: Yes (Hospitalization)
  Sender: FDA-Public Use
  Company Number: CD-MERCK-1401COD011773

PATIENT
  Age: 32 Year
  Sex: Male
  Weight: 73 kg

DRUGS (1)
  1. IVERMECTIN [Suspect]
     Dosage: 4 DF, UNK
     Route: 048
     Dates: start: 20130201

REACTIONS (1)
  - Nervous system disorder [Recovered/Resolved]
